FAERS Safety Report 25358657 (Version 1)
Quarter: 2025Q2

REPORT INFORMATION
  Report Type: Spontaneous
  Country: US (occurrence: US)
  Receive Date: 20250526
  Receipt Date: 20250526
  Transmission Date: 20250716
  Serious: Yes (Other)
  Sender: SANDOZ
  Company Number: US-SANDOZ-SDZ2025US034770

PATIENT
  Age: 37 Year
  Sex: Female

DRUGS (1)
  1. ALBUTEROL SULFATE [Suspect]
     Active Substance: ALBUTEROL SULFATE
     Indication: Asthma
     Route: 065

REACTIONS (6)
  - Autoimmune disorder [Unknown]
  - Tongue disorder [Unknown]
  - COVID-19 [Unknown]
  - Chest pain [Unknown]
  - Insomnia [Unknown]
  - Product delivery mechanism issue [Unknown]
